FAERS Safety Report 25522589 (Version 3)
Quarter: 2025Q3

REPORT INFORMATION
  Report Type: Spontaneous
  Country: CN (occurrence: CN)
  Receive Date: 20250707
  Receipt Date: 20250812
  Transmission Date: 20251020
  Serious: Yes (Other)
  Sender: ALEXION PHARMACEUTICALS
  Company Number: CN-ASTRAZENECA-202506GLO024357CN

PATIENT
  Age: 59 Year
  Sex: Male

DRUGS (2)
  1. OSIMERTINIB [Suspect]
     Active Substance: OSIMERTINIB
     Indication: Metastases to meninges
     Dosage: 80 MILLIGRAM, QD
     Route: 065
  2. OSIMERTINIB [Suspect]
     Active Substance: OSIMERTINIB
     Indication: Intracranial pressure increased

REACTIONS (4)
  - Red blood cell count decreased [Recovered/Resolved]
  - White blood cell count decreased [Recovered/Resolved]
  - Platelet count decreased [Recovered/Resolved]
  - Off label use [Unknown]
